FAERS Safety Report 16001417 (Version 3)
Quarter: 2019Q2

REPORT INFORMATION
  Report Type: Spontaneous
  Country: US (occurrence: US)
  Receive Date: 20190225
  Receipt Date: 20190530
  Transmission Date: 20190711
  Serious: Yes (Death, Hospitalization, Other)
  Sender: FDA-Public Use
  Company Number: US-009507513-1902USA010116

PATIENT
  Sex: Female
  Weight: 62.59 kg

DRUGS (2)
  1. KEYTRUDA [Suspect]
     Active Substance: PEMBROLIZUMAB
     Indication: NON-SMALL CELL LUNG CANCER STAGE IV
     Dosage: 200 MG
     Route: 042
     Dates: start: 20171103, end: 20171103
  2. KEYTRUDA [Suspect]
     Active Substance: PEMBROLIZUMAB
     Indication: LUNG ADENOCARCINOMA
     Dosage: 200 MG
     Route: 042
     Dates: start: 20171108, end: 20171108

REACTIONS (14)
  - Malignant neoplasm progression [Fatal]
  - Hypotension [Unknown]
  - Pericardial effusion [Unknown]
  - Hypoxia [Unknown]
  - Constipation [Unknown]
  - Decreased appetite [Unknown]
  - Acute respiratory failure [Unknown]
  - Atrial fibrillation [Unknown]
  - Anxiety [Unknown]
  - Peripheral swelling [Unknown]
  - Cardiac tamponade [Unknown]
  - Pulmonary embolism [Unknown]
  - Depression [Unknown]
  - Fatigue [Unknown]

NARRATIVE: CASE EVENT DATE: 201711
